FAERS Safety Report 5478942-8 (Version None)
Quarter: 2007Q4

REPORT INFORMATION
  Report Type: 
  Country: None (occurrence: None)
  Receive Date: 20071006
  Receipt Date: 20070924
  Transmission Date: 20080405
  Serious: Yes (Other)
  Sender: FDA-Public Use
  Company Number: US-PFIZER INC-2007080017

PATIENT
  Sex: Female
  Weight: 79.4 kg

DRUGS (10)
  1. NEURONTIN [Suspect]
     Indication: NEUROPATHY PERIPHERAL
  2. LYRICA [Suspect]
     Indication: NEUROPATHY PERIPHERAL
  3. TOFRANIL-PM [Concomitant]
  4. SYNTHROID [Concomitant]
  5. ZOCOR [Concomitant]
  6. MIACALCIN [Concomitant]
  7. PRILOSEC [Concomitant]
  8. CALCIUM [Concomitant]
  9. CENTRUM [Concomitant]
  10. ASCORBIC ACID [Concomitant]

REACTIONS (9)
  - BALANCE DISORDER [None]
  - CONSTIPATION [None]
  - DRUG INEFFECTIVE [None]
  - GAIT DISTURBANCE [None]
  - INCOHERENT [None]
  - NEURALGIA [None]
  - NEUROPATHY PERIPHERAL [None]
  - PAIN [None]
  - SOMNOLENCE [None]
